FAERS Safety Report 6649757-X (Version None)
Quarter: 2010Q1

REPORT INFORMATION
  Report Type: 
  Country: None (occurrence: None)
  Receive Date: 20100324
  Receipt Date: 20100324
  Transmission Date: 20100710
  Serious: Yes (Disabling)
  Sender: FDA-Public Use
  Company Number: None

PATIENT
  Age: 48 Year
  Sex: Female
  Weight: 50.8029 kg

DRUGS (3)
  1. ACTONEL [Suspect]
     Indication: OSTEOPOROSIS
     Dosage: NORMAL
     Dates: start: 20030926, end: 20030926
  2. BONIVA [Suspect]
     Indication: OSTEOPOROSIS
     Dosage: NORMAL
     Dates: start: 20050926, end: 20080515
  3. FOSAMAX [Suspect]

REACTIONS (3)
  - BONE ABSCESS [None]
  - BONE PAIN [None]
  - MUSCLE SPASMS [None]
